FAERS Safety Report 17675947 (Version 15)
Quarter: 2021Q3

REPORT INFORMATION
  Report Type: Spontaneous
  Country: US (occurrence: US)
  Receive Date: 20200416
  Receipt Date: 20210719
  Transmission Date: 20211014
  Serious: Yes (Other)
  Sender: FDA-Public Use
  Company Number: US-GLAXOSMITHKLINE-US2020AMR055751

PATIENT
  Age: 74 Year
  Sex: Female

DRUGS (11)
  1. ZEJULA [Suspect]
     Active Substance: NIRAPARIB
     Dosage: 200 MG, QD
     Dates: start: 202003
  2. ZEJULA [Suspect]
     Active Substance: NIRAPARIB
     Dosage: 100 MG, QD
  3. ZEJULA [Suspect]
     Active Substance: NIRAPARIB
     Dosage: 100 MG, QD
     Route: 048
  4. ZEJULA [Suspect]
     Active Substance: NIRAPARIB
     Dosage: 100 MG, QD
  5. ZEJULA [Suspect]
     Active Substance: NIRAPARIB
     Dosage: 100 MG, QD
  6. ZEJULA [Suspect]
     Active Substance: NIRAPARIB
     Dosage: 100 MG, QD
  7. ZEJULA [Suspect]
     Active Substance: NIRAPARIB
     Dosage: 100 MG, QD
     Route: 048
  8. ZEJULA [Suspect]
     Active Substance: NIRAPARIB
     Indication: OVARIAN CANCER
     Dosage: 200 MG, QD
     Dates: start: 20200306
  9. ZEJULA [Suspect]
     Active Substance: NIRAPARIB
     Dosage: 100 MG, QD
  10. ZEJULA [Suspect]
     Active Substance: NIRAPARIB
     Dosage: 100 MG, QD
     Dates: start: 20200724
  11. ZEJULA [Suspect]
     Active Substance: NIRAPARIB
     Dosage: 100 MG, QD

REACTIONS (22)
  - Insomnia [Unknown]
  - Head discomfort [Unknown]
  - Pruritus [Recovered/Resolved]
  - Blood pressure decreased [Recovered/Resolved]
  - Platelet count decreased [Unknown]
  - Asthenia [Unknown]
  - Condition aggravated [Unknown]
  - Feeling abnormal [Unknown]
  - White blood cell count decreased [Recovering/Resolving]
  - Pain in extremity [Unknown]
  - Catheter site pain [Unknown]
  - Deafness [Not Recovered/Not Resolved]
  - Jaw disorder [Unknown]
  - Memory impairment [Unknown]
  - Palpitations [Unknown]
  - Red blood cell count decreased [Recovering/Resolving]
  - Contusion [Recovering/Resolving]
  - Off label use [Unknown]
  - Thrombocytopenia [Unknown]
  - Neck pain [Unknown]
  - Musculoskeletal discomfort [Unknown]
  - Limb discomfort [Unknown]

NARRATIVE: CASE EVENT DATE: 20200430
